FAERS Safety Report 13005029 (Version 1)
Quarter: 2016Q4

REPORT INFORMATION
  Report Type: Spontaneous
  Country: US (occurrence: US)
  Receive Date: 20161207
  Receipt Date: 20161207
  Transmission Date: 20170207
  Serious: No
  Sender: FDA-Public Use
  Company Number: US-PFIZER INC-2016559385

PATIENT
  Age: 58 Year
  Sex: Female

DRUGS (1)
  1. XELJANZ [Suspect]
     Active Substance: TOFACITINIB CITRATE
     Dosage: 5 MG, 2X/DAY
     Dates: start: 20150724, end: 20160803

REACTIONS (10)
  - Eye injury [Unknown]
  - Eye contusion [Unknown]
  - Contusion [Unknown]
  - Tenderness [Unknown]
  - Fungal infection [Not Recovered/Not Resolved]
  - Malaise [Unknown]
  - Limb injury [Unknown]
  - Fall [Unknown]
  - Injury [Unknown]
  - Urinary tract infection [Not Recovered/Not Resolved]
